FAERS Safety Report 22020619 (Version 1)
Quarter: 2023Q1

REPORT INFORMATION
  Report Type: Spontaneous
  Country: US (occurrence: None)
  Receive Date: 20230217
  Receipt Date: 20230217
  Transmission Date: 20230417
  Serious: Yes (Life-Threatening, Disabling, Other)
  Sender: FDA-Public Use
  Company Number: None

PATIENT
  Age: 89 Year
  Sex: Male
  Weight: 71.1 kg

DRUGS (11)
  1. GABAPENTIN [Suspect]
     Active Substance: GABAPENTIN
     Indication: Back pain
     Dosage: FREQUENCY : 3 TIMES A DAY;?
     Route: 048
     Dates: start: 20220214, end: 20220301
  2. SYNTHROID [Concomitant]
     Active Substance: LEVOTHYROXINE SODIUM
  3. toresmide [Concomitant]
  4. TOPROL XL [Concomitant]
     Active Substance: METOPROLOL SUCCINATE
  5. AMIODARONE [Concomitant]
     Active Substance: AMIODARONE
  6. LISINOPRIL [Concomitant]
     Active Substance: LISINOPRIL
  7. ELIQUIS [Concomitant]
     Active Substance: APIXABAN
  8. ATORVASTATIN [Concomitant]
     Active Substance: ATORVASTATIN
  9. VITAMIN B12 [Concomitant]
     Active Substance: CYANOCOBALAMIN
  10. VITAMIN D3 [Concomitant]
     Active Substance: CHOLECALCIFEROL
  11. CALTRATE [Concomitant]
     Active Substance: CALCIUM CARBONATE

REACTIONS (13)
  - Tremor [None]
  - Fall [None]
  - Muscular weakness [None]
  - Loss of personal independence in daily activities [None]
  - Gait disturbance [None]
  - Peripheral swelling [None]
  - Peripheral swelling [None]
  - Anxiety [None]
  - Memory impairment [None]
  - Wound infection [None]
  - Joint swelling [None]
  - Stress [None]
  - Emotional distress [None]

NARRATIVE: CASE EVENT DATE: 20220214
